FAERS Safety Report 8246788-3 (Version None)
Quarter: 2012Q1

REPORT INFORMATION
  Report Type: 
  Country: None (occurrence: None)
  Receive Date: 20120330
  Receipt Date: 20120320
  Transmission Date: 20120608
  Serious: Yes (Hospitalization, Other)
  Sender: FDA-Public Use
  Company Number: US-PFIZER INC-2012071496

PATIENT
  Age: 46 Year
  Sex: Female
  Weight: 109 kg

DRUGS (2)
  1. HYDROXYCHLOROQUINE SULFATE [Suspect]
     Indication: COLON CANCER
     Dosage: 200 MG, CYCLIC
     Route: 048
     Dates: start: 20120206
  2. SUNITINIB MALATE [Suspect]
     Indication: COLON CANCER
     Dosage: 50 MG, CYCLIC
     Route: 048
     Dates: start: 20120206

REACTIONS (3)
  - COLONIC FISTULA [None]
  - SKIN ULCER [None]
  - FATIGUE [None]
